FAERS Safety Report 8568253-6 (Version None)
Quarter: 2012Q3

REPORT INFORMATION
  Report Type: 
  Country: None (occurrence: None)
  Receive Date: 20120803
  Receipt Date: 20120711
  Transmission Date: 20120928
  Serious: No
  Sender: FDA-Public Use
  Company Number: US-ABBOTT-12P-163-0955192-00

PATIENT
  Sex: Male
  Weight: 117.13 kg

DRUGS (4)
  1. CLARITIN-D [Concomitant]
     Indication: UPPER-AIRWAY COUGH SYNDROME
  2. ASPIRIN [Concomitant]
     Indication: PRODUCT USED FOR UNKNOWN INDICATION
  3. LIPITOR [Concomitant]
     Indication: PRODUCT USED FOR UNKNOWN INDICATION
  4. NIASPAN [Suspect]
     Indication: HIGH DENSITY LIPOPROTEIN DECREASED
     Dosage: EVERY NIGHT
     Dates: start: 20110601

REACTIONS (3)
  - PRURITUS [None]
  - PARAESTHESIA [None]
  - UPPER-AIRWAY COUGH SYNDROME [None]
